FAERS Safety Report 5135916-4 (Version None)
Quarter: 2006Q4

REPORT INFORMATION
  Report Type: 
  Country: None (occurrence: None)
  Receive Date: 20061020
  Receipt Date: 20061010
  Transmission Date: 20070319
  Serious: Yes (Hospitalization)
  Sender: FDA-Public Use
  Company Number: 148511ISR

PATIENT
  Age: 51 Year
  Sex: Female

DRUGS (2)
  1. PREDNISOLONE [Suspect]
     Indication: LUNG TRANSPLANT
  2. CYCLOSPORINE [Suspect]
     Indication: LUNG TRANSPLANT

REACTIONS (6)
  - ASPERGILLOSIS [None]
  - INCREASED BRONCHIAL SECRETION [None]
  - LUNG DISORDER [None]
  - LUNG TRANSPLANT REJECTION [None]
  - SPIROMETRY ABNORMAL [None]
  - TRACHEOBRONCHITIS [None]
